FAERS Safety Report 7574470-4 (Version None)
Quarter: 2011Q2

REPORT INFORMATION
  Report Type: 
  Country: None (occurrence: None)
  Receive Date: 20110627
  Receipt Date: 20110524
  Transmission Date: 20111010
  Serious: Yes (Hospitalization)
  Sender: FDA-Public Use
  Company Number: RU-BAYER-2011-044229

PATIENT
  Age: 44 Year
  Sex: Female

DRUGS (2)
  1. MIRENA [Suspect]
     Indication: MENORRHAGIA
  2. MIRENA [Suspect]
     Indication: ENDOMETRIOSIS
     Dosage: UNK
     Route: 015
     Dates: start: 20101126, end: 20110504

REACTIONS (4)
  - DEVICE EXPULSION [None]
  - UTERINE LEIOMYOMA [None]
  - ENDOMETRIOSIS [None]
  - VAGINAL HAEMORRHAGE [None]
